FAERS Safety Report 8222690-8 (Version None)
Quarter: 2012Q1

REPORT INFORMATION
  Report Type: 
  Country: None (occurrence: None)
  Receive Date: 20120320
  Receipt Date: 20120308
  Transmission Date: 20120608
  Serious: Yes (Death, Other)
  Sender: FDA-Public Use
  Company Number: BR-ELI_LILLY_AND_COMPANY-BR201112000046

PATIENT
  Sex: Female

DRUGS (1)
  1. FORTEO [Suspect]
     Dosage: UNK, QD
     Route: 058

REACTIONS (4)
  - DROOLING [None]
  - BLADDER CANCER [None]
  - FACIAL ASYMMETRY [None]
  - BRAIN NEOPLASM MALIGNANT [None]
